FAERS Safety Report 5810141-X (Version None)
Quarter: 2008Q3

REPORT INFORMATION
  Report Type: 
  Country: None (occurrence: None)
  Receive Date: 20080715
  Receipt Date: 20070723
  Transmission Date: 20090109
  Serious: No
  Sender: FDA-Public Use
  Company Number: A0665797A

PATIENT
  Age: 57 Year
  Sex: Female

DRUGS (2)
  1. IMITREX [Suspect]
     Indication: MIGRAINE
     Dosage: 25MG AS REQUIRED
     Route: 048
     Dates: start: 20030101
  2. NO CONCURRENT MEDICATION [Concomitant]

REACTIONS (2)
  - DIARRHOEA [None]
  - STOMACH DISCOMFORT [None]
